FAERS Safety Report 4933322-6 (Version None)
Quarter: 2006Q1

REPORT INFORMATION
  Report Type: 
  Country: None (occurrence: None)
  Receive Date: 20060111
  Receipt Date: 20050119
  Transmission Date: 20060701
  Serious: Yes (Hospitalization)
  Sender: FDA-Public Use
  Company Number: A001-002-006363

PATIENT
  Age: 81 Year
  Sex: Male
  Weight: 66 kg

DRUGS (3)
  1. ARICEPT [Suspect]
     Indication: DEMENTIA
     Dosage: 10 MG, 1 IN 1 D, ORAL
     Route: 048
  2. DIGOXIN [Concomitant]
  3. LISINOPRIL [Concomitant]

REACTIONS (1)
  - PERFORATED ULCER [None]
